FAERS Safety Report 5835010-0 (Version None)
Quarter: 2008Q3

REPORT INFORMATION
  Report Type: 
  Country: None (occurrence: None)
  Receive Date: 20080801
  Receipt Date: 20080721
  Transmission Date: 20090109
  Serious: Yes (Other)
  Sender: FDA-Public Use
  Company Number: 107#03#2008-03799

PATIENT
  Age: 37 Year
  Sex: Female

DRUGS (1)
  1. MIRTAZAPINE [Suspect]
     Indication: DEPRESSION
     Dosage: 30 MG, ORAL
     Route: 048
     Dates: start: 20080325, end: 20080427

REACTIONS (2)
  - DEEP VEIN THROMBOSIS [None]
  - VENOUS INSUFFICIENCY [None]
